FAERS Safety Report 8962563 (Version 2)
Quarter: 2013Q1

REPORT INFORMATION
  Report Type: Spontaneous
  Country: US (occurrence: None)
  Receive Date: 20121205
  Receipt Date: 20130325
  Transmission Date: 20140127
  Serious: Yes (Other)
  Sender: FDA-Public Use
  Company Number: CRC-12-612

PATIENT
  Age: 49 Year
  Sex: Male
  Weight: 93.9 kg

DRUGS (2)
  1. OCTREOTIDE ACETATE [Suspect]
     Indication: ACROMEGALY
     Dosage: 50 MCG 3X/DAY; SQ
     Route: 058
     Dates: start: 20121123, end: 20121124
  2. OCTREOTIDE ACETATE [Suspect]
     Indication: PITUITARY TUMOUR
     Dosage: 50 MCG 3X/DAY; SQ
     Route: 058
     Dates: start: 20121123, end: 20121124

REACTIONS (3)
  - Palpitations [None]
  - Large intestinal obstruction [None]
  - Diarrhoea [None]
